FAERS Safety Report 11059543 (Version 1)
Quarter: 2015Q2

REPORT INFORMATION
  Report Type: Report from Study
  Country: CN (occurrence: CN)
  Receive Date: 20150423
  Receipt Date: 20150423
  Transmission Date: 20150821
  Serious: Yes (Death)
  Sender: FDA-Public Use
  Company Number: CN-AMGEN-CHNCT2015006757

PATIENT
  Age: 76 Year
  Sex: Male
  Weight: 71 kg

DRUGS (12)
  1. PREDNISONE. [Suspect]
     Active Substance: PREDNISONE
     Indication: PLASMA CELL MYELOMA
     Dosage: 110 MG, PER CHEMO REGIM
     Route: 048
     Dates: start: 20150120
  2. ALDEHYDES AND DERIVATIVES [Concomitant]
     Indication: AZOTAEMIA
     Dosage: 10 G, QD
     Route: 048
     Dates: start: 20150119, end: 20150119
  3. INSULIN INJECTION [Concomitant]
     Active Substance: INSULIN NOS
     Indication: BLOOD GLUCOSE DECREASED
     Dosage: 4 IU, QD
     Route: 058
     Dates: start: 20150121, end: 20150123
  4. COENZYME Q10 [Concomitant]
     Active Substance: UBIDECARENONE
     Indication: PROPHYLAXIS
     Dosage: 10 MG, TID
     Route: 048
     Dates: start: 20150120, end: 20150123
  5. CARFILZOMIB [Suspect]
     Active Substance: CARFILZOMIB
     Indication: PLASMA CELL MYELOMA
     Dosage: 20 MG/M2, PER CHEMO REGIM
     Route: 042
     Dates: start: 20150120
  6. CHENG RUI [Concomitant]
     Indication: INTESTINAL OBSTRUCTION
     Dosage: 1 OTHER, QD
     Route: 050
     Dates: start: 20150119, end: 20150119
  7. GRANISETRON HYDROCHLORIDE. [Concomitant]
     Active Substance: GRANISETRON HYDROCHLORIDE
     Indication: VOMITING
  8. CETYLPYRIDINIUM CHLORIDE. [Concomitant]
     Active Substance: CETYLPYRIDINIUM CHLORIDE
     Indication: DRY MOUTH
     Dosage: 240 ML, AS NECESSARY
     Route: 061
     Dates: start: 20150120, end: 20150120
  9. ALDEHYDES AND DERIVATIVES [Concomitant]
     Dosage: 5 G, QD
     Route: 048
     Dates: start: 20150119, end: 20150123
  10. GRANISETRON HYDROCHLORIDE. [Concomitant]
     Active Substance: GRANISETRON HYDROCHLORIDE
     Indication: NAUSEA
     Dosage: 1 MG, AS NECESSARY
     Route: 048
     Dates: start: 20150120, end: 20150120
  11. OMEPRAZOLE. [Concomitant]
     Active Substance: OMEPRAZOLE
     Indication: PROPHYLAXIS
     Dosage: 40 MG, QD
     Route: 042
     Dates: start: 20150120, end: 20150123
  12. MELPHALAN [Suspect]
     Active Substance: MELPHALAN
     Indication: PLASMA CELL MYELOMA
     Dosage: 10 MG, PER CHEMO REGIM
     Route: 048
     Dates: start: 20150120

REACTIONS (1)
  - Acute kidney injury [Fatal]

NARRATIVE: CASE EVENT DATE: 20150122
